FAERS Safety Report 18257457 (Version 1)
Quarter: 2020Q3

REPORT INFORMATION
  Report Type: Spontaneous
  Country: US (occurrence: US)
  Receive Date: 20200911
  Receipt Date: 20200911
  Transmission Date: 20201103
  Serious: Yes (Hospitalization)
  Sender: FDA-Public Use
  Company Number: None

PATIENT
  Age: 19 Year
  Sex: Female
  Weight: 92.99 kg

DRUGS (3)
  1. NEXPLANON [Suspect]
     Active Substance: ETONOGESTREL
     Dates: start: 20180508, end: 20200908
  2. IRON PILLS [Concomitant]
     Active Substance: IRON
  3. KEFLEX [Concomitant]
     Active Substance: CEPHALEXIN

REACTIONS (10)
  - Complication of device removal [None]
  - Implant site pain [None]
  - Pain in extremity [None]
  - Peripheral swelling [None]
  - Menorrhagia [None]
  - Infection [None]
  - Breast mass [None]
  - Device dislocation [None]
  - Procedural pain [None]
  - Inflammation [None]

NARRATIVE: CASE EVENT DATE: 20200817
